FAERS Safety Report 4965707-6 (Version None)
Quarter: 2006Q2

REPORT INFORMATION
  Report Type: 
  Country: None (occurrence: None)
  Receive Date: 20060405
  Receipt Date: 20060405
  Transmission Date: 20061013
  Serious: Yes (Hospitalization)
  Sender: FDA-Public Use
  Company Number: None

PATIENT
  Sex: Female
  Weight: 127 kg

DRUGS (3)
  1. DEXFERRUM [Suspect]
     Indication: IRON DEFICIENCY ANAEMIA
     Dosage: 100 MG OVER 1 HR QWEEK IV
     Route: 042
     Dates: start: 20060315
  2. DEXFERRUM [Suspect]
     Indication: IRON DEFICIENCY ANAEMIA
     Dosage: 100 MG OVER 1 HR QWEEK IV
     Route: 042
     Dates: start: 20060322
  3. DEXFERRUM [Suspect]
     Indication: IRON DEFICIENCY ANAEMIA
     Dosage: 100 MG OVER 1 HR QWEEK IV
     Route: 042
     Dates: start: 20060329

REACTIONS (9)
  - BLOOD PRESSURE DECREASED [None]
  - DEFAECATION URGENCY [None]
  - HYPERHIDROSIS [None]
  - INFUSION RELATED REACTION [None]
  - NAUSEA [None]
  - OXYGEN SATURATION DECREASED [None]
  - PAIN [None]
  - RENAL PAIN [None]
  - RESTLESSNESS [None]
